FAERS Safety Report 4406389-1 (Version None)
Quarter: 2004Q3

REPORT INFORMATION
  Report Type: 
  Country: None (occurrence: None)
  Receive Date: 20040723
  Receipt Date: 20030714
  Transmission Date: 20050211
  Serious: No
  Sender: FDA-Public Use
  Company Number: US-GLAXOSMITHKLINE-A0416630A

PATIENT
  Age: 80 Year
  Sex: Male

DRUGS (12)
  1. AVANDIA [Suspect]
     Dosage: 4MG PER DAY
     Route: 048
     Dates: start: 20030710
  2. GLYBURIDE [Concomitant]
     Dosage: 1.25MG PER DAY
  3. INDOCIN [Concomitant]
     Dosage: 25MG THREE TIMES PER DAY
  4. OCUVITE [Concomitant]
  5. MULTIVITAMIN [Concomitant]
  6. ALLOPURINOL [Concomitant]
     Dosage: 300MG PER DAY
  7. ADALAT CC [Concomitant]
     Dosage: 60MG PER DAY
  8. AFRIN [Concomitant]
  9. TEVETEN [Concomitant]
  10. TIMOPTIC-XE [Concomitant]
  11. TRAVATAN [Concomitant]
  12. ZOCOR [Concomitant]
     Dosage: 20MG PER DAY

REACTIONS (2)
  - DIZZINESS [None]
  - HYPOGLYCAEMIA [None]
